FAERS Safety Report 7212978-1 (Version None)
Quarter: 2011Q1

REPORT INFORMATION
  Report Type: 
  Country: None (occurrence: None)
  Receive Date: 20110106
  Receipt Date: 20110103
  Transmission Date: 20110831
  Serious: Yes (Other)
  Sender: FDA-Public Use
  Company Number: A0892859A

PATIENT
  Age: 86 Year
  Sex: Female

DRUGS (8)
  1. LOVAZA [Suspect]
     Dosage: 2CAP TWICE PER DAY
     Route: 048
     Dates: start: 20090101
  2. PLAVIX [Concomitant]
  3. PANTOPRAZOLE [Concomitant]
  4. FEXOFENADINE HCL [Concomitant]
  5. SYNTHROID [Concomitant]
  6. ISOSORBIDE DINITRATE [Concomitant]
  7. KLOR-CON [Concomitant]
  8. AMLODIPINE [Concomitant]

REACTIONS (5)
  - PRODUCT QUALITY ISSUE [None]
  - NAIL DISCOLOURATION [None]
  - DYSPHAGIA [None]
  - FOREIGN BODY [None]
  - CHOKING [None]
